FAERS Safety Report 10513939 (Version 2)
Quarter: 2014Q4

REPORT INFORMATION
  Report Type: Report from Study
  Country: US (occurrence: US)
  Receive Date: 20141013
  Receipt Date: 20141114
  Transmission Date: 20150528
  Serious: Yes (Hospitalization)
  Sender: FDA-Public Use
  Company Number: US-SA-2014SA138082

PATIENT
  Sex: Female

DRUGS (2)
  1. LANTUS [Suspect]
     Active Substance: INSULIN GLARGINE
     Indication: DIABETES MELLITUS
     Dosage: DOSE:60 UNIT(S)
     Route: 065
  2. APIDRA [Suspect]
     Active Substance: INSULIN GLULISINE
     Indication: DIABETES MELLITUS
     Dosage: DOSE:14 UNIT(S)
     Route: 065

REACTIONS (2)
  - Unevaluable event [Unknown]
  - Drug administration error [Unknown]
